FAERS Safety Report 14108453 (Version 1)
Quarter: 2017Q4

REPORT INFORMATION
  Report Type: Spontaneous
  Country: FR (occurrence: FR)
  Receive Date: 20171019
  Receipt Date: 20171019
  Transmission Date: 20180321
  Serious: Yes (Other)
  Sender: FDA-Public Use
  Company Number: FR-ALLERGAN-1759304US

PATIENT
  Age: 54 Year
  Sex: Female

DRUGS (8)
  1. MILNACIPRAN - BP [Suspect]
     Active Substance: MILNACIPRAN
     Dosage: 50 MG, QOD
     Route: 065
  2. APRANAX [Concomitant]
     Active Substance: NAPROXEN
     Indication: PRODUCT USED FOR UNKNOWN INDICATION
     Dosage: UNK, UNKNOWN
     Route: 065
  3. TRINORDIOL [Concomitant]
     Active Substance: ETHINYL ESTRADIOL\LEVONORGESTREL
     Indication: PRODUCT USED FOR UNKNOWN INDICATION
     Dosage: UNK, UNKNOWN
     Route: 065
     Dates: end: 201211
  4. MILNACIPRAN - BP [Suspect]
     Active Substance: MILNACIPRAN
     Indication: FIBROMYALGIA
     Dosage: 50 MG, QD
     Route: 065
     Dates: start: 20130528, end: 20130531
  5. MILNACIPRAN - BP [Suspect]
     Active Substance: MILNACIPRAN
     Dosage: 50 MG, QD
     Route: 065
     Dates: end: 20170928
  6. ALMOGRAN [Concomitant]
     Active Substance: ALMOTRIPTAN MALATE
     Indication: PRODUCT USED FOR UNKNOWN INDICATION
     Dosage: UNK, UNKNOWN
     Route: 065
  7. MILNACIPRAN - BP [Suspect]
     Active Substance: MILNACIPRAN
     Dosage: 50 MG, BID
     Route: 065
     Dates: start: 201306
  8. MILNACIPRAN [Suspect]
     Active Substance: MILNACIPRAN
     Indication: FIBROMYALGIA
     Dosage: UNK, UNKNOWN
     Route: 065
     Dates: start: 201601, end: 201603

REACTIONS (18)
  - Urinary incontinence [Not Recovered/Not Resolved]
  - Hallucination, auditory [Not Recovered/Not Resolved]
  - Pain [Not Recovered/Not Resolved]
  - Visual acuity reduced [Not Recovered/Not Resolved]
  - Hot flush [Not Recovered/Not Resolved]
  - Herpes ophthalmic [Recovered/Resolved]
  - Dysphagia [Not Recovered/Not Resolved]
  - Menstrual disorder [Recovered/Resolved]
  - Vertigo [Not Recovered/Not Resolved]
  - Abdominal pain [Not Recovered/Not Resolved]
  - Cystitis klebsiella [Not Recovered/Not Resolved]
  - Amnesia [Not Recovered/Not Resolved]
  - Dry eye [Not Recovered/Not Resolved]
  - Intentional product misuse [Unknown]
  - Nasal dryness [Not Recovered/Not Resolved]
  - Malaise [Recovered/Resolved]
  - Restless legs syndrome [Not Recovered/Not Resolved]
  - Nausea [Not Recovered/Not Resolved]

NARRATIVE: CASE EVENT DATE: 201702
